FAERS Safety Report 9147451 (Version 2)
Quarter: 2013Q3

REPORT INFORMATION
  Report Type: Spontaneous
  Country: US (occurrence: US)
  Receive Date: 20130307
  Receipt Date: 20130715
  Transmission Date: 20140515
  Serious: Yes (Death, Life-Threatening, Hospitalization, Other)
  Sender: FDA-Public Use
  Company Number: US-ELI_LILLY_AND_COMPANY-US201302009648

PATIENT
  Age: 71 Year
  Sex: Female

DRUGS (2)
  1. FORTEO [Suspect]
     Indication: OSTEOPOROSIS
     Dosage: UNK
     Dates: start: 20130118
  2. CALCIUM [Concomitant]
     Dosage: UNK

REACTIONS (4)
  - Cardio-respiratory arrest [Fatal]
  - Respiratory acidosis [Unknown]
  - Hyperglycaemia [Unknown]
  - Convulsion [Unknown]
